FAERS Safety Report 20784747 (Version 1)
Quarter: 2022Q2

REPORT INFORMATION
  Report Type: Spontaneous
  Country: US (occurrence: US)
  Receive Date: 20220504
  Receipt Date: 20220504
  Transmission Date: 20220720
  Serious: No
  Sender: FDA-Public Use
  Company Number: US-PERRIGO-21US004686

PATIENT
  Age: 54 Year
  Sex: Female

DRUGS (3)
  1. MICONAZOLE 3 COMBINATION PACK [Suspect]
     Active Substance: MICONAZOLE NITRATE
     Indication: Vaginal infection
     Dosage: 200 MG, SINGLE
     Route: 067
     Dates: start: 20210401, end: 20210401
  2. PREMARIN [Concomitant]
     Active Substance: ESTROGENS, CONJUGATED
     Indication: Hormone replacement therapy
     Dosage: UNKNOWN, UNKNOWN
     Route: 065
     Dates: start: 2014
  3. FOSAMAX [Concomitant]
     Active Substance: ALENDRONATE SODIUM
     Indication: Osteoporosis
     Dosage: UNKNOWN, UNKNOWN
     Route: 065
     Dates: start: 2018

REACTIONS (2)
  - Vaginal haemorrhage [Recovered/Resolved]
  - Vulvovaginal burning sensation [Recovering/Resolving]

NARRATIVE: CASE EVENT DATE: 20210401
